FAERS Safety Report 26083655 (Version 1)
Quarter: 2025Q4

REPORT INFORMATION
  Report Type: Spontaneous
  Country: US (occurrence: US)
  Receive Date: 20251124
  Receipt Date: 20251124
  Transmission Date: 20260118
  Serious: No
  Sender: GILEAD
  Company Number: US-GILEAD-2025-0737056

PATIENT
  Age: 24 Year
  Sex: Female

DRUGS (3)
  1. YEZTUGO [Suspect]
     Active Substance: LENACAPAVIR SODIUM
     Indication: Product used for unknown indication
     Dosage: UNK(INJECTION FORMULATION)
     Route: 058
     Dates: start: 20251114, end: 20251114
  2. YEZTUGO [Suspect]
     Active Substance: LENACAPAVIR SODIUM
     Dosage: UNK(INJECTION FORMULATION)
     Route: 058
     Dates: start: 20251114, end: 20251114
  3. YEZTUGO [Suspect]
     Active Substance: LENACAPAVIR SODIUM
     Indication: Product used for unknown indication
     Dosage: (TABLET FORMULATION)
     Route: 065

REACTIONS (3)
  - Injection site discharge [Recovered/Resolved]
  - Injection site pain [Recovered/Resolved]
  - Wrong technique in product usage process [Recovered/Resolved]

NARRATIVE: CASE EVENT DATE: 20251114
